FAERS Safety Report 13764659 (Version 4)
Quarter: 2017Q4

REPORT INFORMATION
  Report Type: Spontaneous
  Country: BE (occurrence: BE)
  Receive Date: 20170718
  Receipt Date: 20171208
  Transmission Date: 20180320
  Serious: Yes (Other)
  Sender: FDA-Public Use
  Company Number: BE-BAYER-2017-130758

PATIENT
  Age: 78 Year
  Sex: Male

DRUGS (13)
  1. BEFACT [CYANOCOBALAMIN,PYRIDOXINE HYDROCHLORIDE,RIBOFLAVIN,THIAMIN [Concomitant]
  2. NOBIRETIC [Concomitant]
  3. CELEBREX [Concomitant]
     Active Substance: CELECOXIB
  4. DUROGESIC [Concomitant]
     Active Substance: FENTANYL
     Indication: CHEST PAIN
     Route: 062
  5. DAFALGAN [Concomitant]
     Active Substance: ACETAMINOPHEN
     Indication: CHEST PAIN
  6. LIPITOR [Concomitant]
     Active Substance: ATORVASTATIN CALCIUM
  7. XOFIGO [Suspect]
     Active Substance: RADIUM RA-223 DICHLORIDE
     Indication: PROSTATE CANCER
     Dosage: UNK
     Route: 042
     Dates: start: 20170614, end: 20170614
  8. ASAFLOW [Concomitant]
     Active Substance: ASPIRIN
  9. PANTOPRAZOLE SODIUM. [Concomitant]
     Active Substance: PANTOPRAZOLE SODIUM
  10. XGEVA [Concomitant]
     Active Substance: DENOSUMAB
  11. TRADONAL [Concomitant]
     Active Substance: TRAMADOL HYDROCHLORIDE
     Indication: CHEST PAIN
  12. COVERAM [Concomitant]
     Active Substance: AMLODIPINE\PERINDOPRIL
  13. ELIGARD [Concomitant]
     Active Substance: LEUPROLIDE ACETATE
     Dosage: 45 MG, UNK

REACTIONS (12)
  - Metamorphopsia [None]
  - Eye discharge [None]
  - Subretinal fluid [Recovering/Resolving]
  - Visual impairment [None]
  - Retinal haemorrhage [None]
  - Eye haemorrhage [None]
  - Cataract [None]
  - Retinal disorder [None]
  - Retinal neovascularisation [None]
  - Retinal degeneration [None]
  - Retinal pigment epitheliopathy [None]
  - Macular degeneration [None]

NARRATIVE: CASE EVENT DATE: 20170617
